FAERS Safety Report 4915324-9 (Version None)
Quarter: 2006Q1

REPORT INFORMATION
  Report Type: 
  Country: None (occurrence: None)
  Receive Date: 20060217
  Receipt Date: 20060209
  Transmission Date: 20060701
  Serious: Yes (Life-Threatening)
  Sender: FDA-Public Use
  Company Number: PL-GLAXOSMITHKLINE-B0411614A

PATIENT
  Age: 52 Year
  Sex: Female

DRUGS (5)
  1. ZINNAT [Suspect]
     Indication: BRONCHITIS
     Dosage: .5MG TWICE PER DAY
     Route: 065
     Dates: start: 20051027, end: 20051028
  2. CETIRIZINE [Concomitant]
     Indication: BRONCHITIS
     Route: 048
     Dates: start: 20051027, end: 20051028
  3. DEXTROMETHORPHAN + GUAIFENESIN [Concomitant]
     Indication: BRONCHITIS
     Route: 048
     Dates: start: 20051027, end: 20051028
  4. RETINOL [Concomitant]
     Indication: BRONCHITIS
     Route: 048
     Dates: start: 20051027, end: 20051028
  5. TOCOPHEROL CONCENTRATE CAP [Concomitant]
     Indication: BRONCHITIS
     Route: 048
     Dates: start: 20051027, end: 20051028

REACTIONS (5)
  - ANAPHYLACTIC SHOCK [None]
  - CIRCULATORY COLLAPSE [None]
  - CONVULSION [None]
  - DISCOMFORT [None]
  - LOSS OF CONSCIOUSNESS [None]
